FAERS Safety Report 17489774 (Version 1)
Quarter: 2020Q1

REPORT INFORMATION
  Report Type: Spontaneous
  Country: US (occurrence: US)
  Receive Date: 20200303
  Receipt Date: 20200303
  Transmission Date: 20200409
  Serious: No
  Sender: FDA-Public Use
  Company Number: US-PERRIGO-19US006182

PATIENT
  Age: 9 Year
  Sex: Female
  Weight: 45.35 kg

DRUGS (1)
  1. IBUPROFEN. [Suspect]
     Active Substance: IBUPROFEN
     Indication: ABDOMINAL PAIN
     Dosage: 200 MG, SINGLE
     Route: 048
     Dates: start: 20190515, end: 20190515

REACTIONS (4)
  - Nasal congestion [Unknown]
  - Sneezing [Unknown]
  - Incorrect dose administered [Recovered/Resolved]
  - Oropharyngeal pain [Unknown]

NARRATIVE: CASE EVENT DATE: 20190515
